FAERS Safety Report 10964184 (Version 2)
Quarter: 2015Q2

REPORT INFORMATION
  Report Type: Report from Study
  Country: AU (occurrence: AU)
  Receive Date: 20150329
  Receipt Date: 20150507
  Transmission Date: 20150821
  Serious: Yes (Hospitalization, Other)
  Sender: FDA-Public Use
  Company Number: PHHY2015AU033685

PATIENT
  Age: 52 Year
  Sex: Female
  Weight: 47 kg

DRUGS (1)
  1. CLOZARIL [Suspect]
     Active Substance: CLOZAPINE
     Indication: SCHIZOPHRENIA
     Dosage: 450 MG, (150 MG IN MORNING AND 300 MG AT NIGHT)
     Route: 048
     Dates: start: 20150108

REACTIONS (22)
  - Blood bicarbonate decreased [Unknown]
  - Blood sodium decreased [Unknown]
  - Blood albumin decreased [Recovered/Resolved]
  - Blood alkaline phosphatase increased [Recovered/Resolved]
  - Seizure [Recovering/Resolving]
  - Blood alkaline phosphatase increased [Unknown]
  - Complex partial seizures [Unknown]
  - Blood magnesium increased [Unknown]
  - Blood glucose increased [Not Recovered/Not Resolved]
  - Incontinence [Recovered/Resolved]
  - Epilepsy [Unknown]
  - Muscle rigidity [Unknown]
  - Dyskinesia [Unknown]
  - Generalised tonic-clonic seizure [Unknown]
  - Loss of consciousness [Unknown]
  - Blood sodium decreased [Recovered/Resolved]
  - Blood lactate dehydrogenase increased [Not Recovered/Not Resolved]
  - Tachycardia [Recovered/Resolved]
  - Head injury [Unknown]
  - Muscle spasms [Unknown]
  - Blood bicarbonate decreased [Recovered/Resolved]
  - Blood cholesterol increased [Not Recovered/Not Resolved]

NARRATIVE: CASE EVENT DATE: 20150127
